FAERS Safety Report 7531133-9 (Version None)
Quarter: 2011Q2

REPORT INFORMATION
  Report Type: 
  Country: None (occurrence: None)
  Receive Date: 20110608
  Receipt Date: 20110120
  Transmission Date: 20111010
  Serious: Yes (Hospitalization)
  Sender: FDA-Public Use
  Company Number: US-BAYER-201038250NA

PATIENT
  Sex: Female
  Weight: 86.168 kg

DRUGS (5)
  1. COUMADIN [Concomitant]
  2. HYDROCHLOROTHIAZIDE [Concomitant]
  3. YAZ [Suspect]
     Indication: CONTRACEPTION
     Dosage: UNK UNK, UNK
     Route: 065
     Dates: start: 20060101, end: 20070101
  4. ZOLOFT [Concomitant]
  5. YASMIN [Suspect]
     Indication: CONTRACEPTION
     Dosage: UNK UNK, UNK
     Route: 065
     Dates: start: 20060814, end: 20070101

REACTIONS (4)
  - DISCOMFORT [None]
  - PULMONARY EMBOLISM [None]
  - PAIN [None]
  - DYSPNOEA [None]
